FAERS Safety Report 5513683-X (Version None)
Quarter: 2007Q4

REPORT INFORMATION
  Report Type: 
  Country: None (occurrence: None)
  Receive Date: 20071108
  Receipt Date: 20071025
  Transmission Date: 20080405
  Serious: Yes (Hospitalization)
  Sender: FDA-Public Use
  Company Number: ACO_00399_2007

PATIENT
  Sex: Female

DRUGS (5)
  1. SIRDALUD (SIRDALUD RETARD - TIZANIDINE HYDROCHLORIDE) 6 MG (NOT SPECIF [Suspect]
     Indication: DRUG USE FOR UNKNOWN INDICATION
     Dosage: (DF)
     Dates: start: 20070501, end: 20070815
  2. BETOLVEX [Concomitant]
  3. CENTYL MITE W/POTASSIUM CHLORIDE [Concomitant]
  4. PRIMPERAN INJ [Concomitant]
  5. VOLTAREN [Concomitant]

REACTIONS (3)
  - CHOLELITHIASIS [None]
  - ILEUS [None]
  - NEPHROLITHIASIS [None]
